FAERS Safety Report 24456647 (Version 2)
Quarter: 2024Q4

REPORT INFORMATION
  Report Type: Report from Study
  Country: US (occurrence: US)
  Receive Date: 20241017
  Receipt Date: 20241024
  Transmission Date: 20250114
  Serious: Yes (Hospitalization, Other)
  Sender: ABBVIE
  Company Number: US-ABBVIE-5966877

PATIENT
  Age: 63 Year
  Sex: Female
  Weight: 95 kg

DRUGS (7)
  1. RINVOQ [Suspect]
     Active Substance: UPADACITINIB
     Indication: Rheumatoid arthritis
     Dosage: FREQUENCY: ONE EVERY OTHER DAY FORM STRENGTH: 15 MILLIGRAMS
     Route: 048
     Dates: start: 202304, end: 20240912
  2. RINVOQ [Suspect]
     Active Substance: UPADACITINIB
     Indication: Rheumatoid arthritis
     Dosage: FORM STRENGTH: 15 MILLIGRAMS
     Route: 048
     Dates: start: 20241003
  3. VITAMIN B12 [Concomitant]
     Active Substance: CYANOCOBALAMIN
     Indication: Hypovitaminosis
  4. METHOTREXATE [Concomitant]
     Active Substance: METHOTREXATE
     Indication: Rheumatoid arthritis
  5. VITAMIN D [Concomitant]
     Active Substance: VITAMIN D NOS
     Indication: Hypovitaminosis
  6. GABAPENTIN [Concomitant]
     Active Substance: GABAPENTIN
     Indication: Peripheral nerve operation
  7. ACETAMINOPHEN\HYDROCODONE [Concomitant]
     Active Substance: ACETAMINOPHEN\HYDROCODONE
     Indication: Pain

REACTIONS (1)
  - Device failure [Recovering/Resolving]

NARRATIVE: CASE EVENT DATE: 20240401
